FAERS Safety Report 16174527 (Version 1)
Quarter: 2019Q2

REPORT INFORMATION
  Report Type: Spontaneous
  Country: CZ (occurrence: CZ)
  Receive Date: 20190409
  Receipt Date: 20190409
  Transmission Date: 20190711
  Serious: Yes (Hospitalization, Other)
  Sender: FDA-Public Use
  Company Number: CZ-SA-2019SA093518

PATIENT
  Age: 60 Year
  Sex: Female

DRUGS (10)
  1. GEMCITABINE [Suspect]
     Active Substance: GEMCITABINE\GEMCITABINE HYDROCHLORIDE
     Indication: CHOLANGIOCARCINOMA
     Dosage: UNK, QCY
     Route: 065
     Dates: start: 201410
  2. GEMCITABINE [Suspect]
     Active Substance: GEMCITABINE\GEMCITABINE HYDROCHLORIDE
     Dosage: 3 SERIES OF CHEMOTHERAPY CBDCA / GEMCITABINE
     Route: 042
  3. CARBOPLATIN. [Suspect]
     Active Substance: CARBOPLATIN
     Indication: CHOLANGIOCARCINOMA
     Dosage: UNK, QCY
     Route: 042
     Dates: start: 201611, end: 201703
  4. CARBOPLATIN. [Suspect]
     Active Substance: CARBOPLATIN
     Indication: CHOLANGIOCARCINOMA
     Dosage: UNK
  5. OXALIPLATIN. [Suspect]
     Active Substance: OXALIPLATIN
     Indication: HEPATIC CANCER
  6. OXALIPLATIN. [Suspect]
     Active Substance: OXALIPLATIN
     Indication: CHOLANGIOCARCINOMA
     Dosage: UNK UNK, QCY, 8 SERIES OF FOLFOX CHEMOTHERAPY
     Route: 042
     Dates: start: 201708, end: 201801
  7. CAPECITABINE. [Suspect]
     Active Substance: CAPECITABINE
     Indication: CHOLANGIOCARCINOMA
     Dates: start: 201802
  8. CISPLATIN. [Suspect]
     Active Substance: CISPLATIN
     Indication: CHOLANGIOCARCINOMA
     Dosage: UNK, QCY
     Route: 065
     Dates: start: 201411
  9. FLUOROURACIL. [Suspect]
     Active Substance: FLUOROURACIL
     Indication: CHOLANGIOCARCINOMA
     Dates: start: 201708, end: 201801
  10. CALCIUM FOLINATE [Suspect]
     Active Substance: LEUCOVORIN CALCIUM
     Indication: CHOLANGIOCARCINOMA
     Dosage: UNK, QCY, 8 SERIES OF FOLFOX CHEMOTHERAPY
     Route: 042
     Dates: start: 201708, end: 201801

REACTIONS (11)
  - Cholangiocarcinoma [Recovering/Resolving]
  - Renal failure [Unknown]
  - Malignant neoplasm progression [Recovering/Resolving]
  - Anaemia [Recovered/Resolved]
  - Neurotoxicity [Unknown]
  - Product use in unapproved indication [Unknown]
  - Oral candidiasis [Unknown]
  - Neutropenia [Unknown]
  - Paraesthesia [Recovered/Resolved]
  - Haematotoxicity [Recovered/Resolved]
  - Thrombocytopenia [Recovered/Resolved]

NARRATIVE: CASE EVENT DATE: 201505
